FAERS Safety Report 25313833 (Version 1)
Quarter: 2025Q2

REPORT INFORMATION
  Report Type: Report from Study
  Country: US (occurrence: US)
  Receive Date: 20250514
  Receipt Date: 20250514
  Transmission Date: 20250717
  Serious: Yes (Hospitalization, Other)
  Sender: BIOGEN
  Company Number: US-BIOGEN-2025BI01310421

PATIENT
  Sex: Female

DRUGS (1)
  1. VUMERITY [Suspect]
     Active Substance: DIROXIMEL FUMARATE
     Indication: Multiple sclerosis
     Route: 050
     Dates: start: 20240415

REACTIONS (4)
  - Hernia [Unknown]
  - Femur fracture [Not Recovered/Not Resolved]
  - Deep vein thrombosis [Unknown]
  - Ileus [Unknown]
